FAERS Safety Report 7525827-9 (Version None)
Quarter: 2011Q2

REPORT INFORMATION
  Report Type: 
  Country: None (occurrence: None)
  Receive Date: 20110606
  Receipt Date: 20110519
  Transmission Date: 20111010
  Serious: Yes (Hospitalization)
  Sender: FDA-Public Use
  Company Number: A0784168A

PATIENT
  Age: 37 Year
  Sex: Female
  Weight: 162.7 kg

DRUGS (16)
  1. AVANDIA [Suspect]
     Dosage: 4MG TWICE PER DAY
     Route: 048
     Dates: start: 20020101, end: 20070601
  2. HYDROCHLOROTHIAZIDE [Concomitant]
  3. LOVAZA [Concomitant]
  4. LOPRESSOR [Concomitant]
  5. LIPITOR [Concomitant]
  6. LANTUS [Concomitant]
  7. IMDUR [Concomitant]
  8. PROTONIX [Concomitant]
  9. LISINOPRIL [Concomitant]
  10. GLUCOPHAGE [Concomitant]
  11. PLAVIX [Concomitant]
  12. FUROSEMIDE [Concomitant]
  13. HUMALOG [Concomitant]
  14. CLONIDINE [Concomitant]
  15. CATAPRES [Concomitant]
  16. NORVASC [Concomitant]

REACTIONS (3)
  - MYOCARDIAL ISCHAEMIA [None]
  - MYOCARDIAL INFARCTION [None]
  - ANGINA PECTORIS [None]
